FAERS Safety Report 5374982-8 (Version None)
Quarter: 2007Q2

REPORT INFORMATION
  Report Type: 
  Country: None (occurrence: None)
  Receive Date: 20070625
  Receipt Date: 20070402
  Transmission Date: 20071010
  Serious: No
  Sender: FDA-Public Use
  Company Number: 07P-163-0363932-00

PATIENT
  Age: 43 Year
  Sex: Female
  Weight: 70.3075 kg

DRUGS (5)
  1. HUMIRA [Suspect]
     Indication: ANKYLOSING SPONDYLITIS
     Dosage: 40 MG, 1 IN 2 WK, SUBCUTANEOUS / 40 MG, 1 IN 2 WK, SUBCUTANEOUS
     Route: 058
     Dates: start: 20051001, end: 20060301
  2. HUMIRA [Suspect]
     Indication: ANKYLOSING SPONDYLITIS
     Dosage: 40 MG, 1 IN 2 WK, SUBCUTANEOUS / 40 MG, 1 IN 2 WK, SUBCUTANEOUS
     Route: 058
     Dates: start: 20070301
  3. CELECOXIB [Concomitant]
  4. SINGULAIR [Concomitant]
  5. MODAFANIL [Concomitant]

REACTIONS (3)
  - ANIMAL BITE [None]
  - INJECTION SITE IRRITATION [None]
  - LOCALISED INFECTION [None]
